FAERS Safety Report 21219623 (Version 1)
Quarter: 2022Q3

REPORT INFORMATION
  Report Type: Spontaneous
  Country: US (occurrence: US)
  Receive Date: 20220817
  Receipt Date: 20220817
  Transmission Date: 20221026
  Serious: Yes (Other)
  Sender: FDA-Public Use
  Company Number: US-BEH-2022148464

PATIENT
  Age: 62 Year
  Sex: Female

DRUGS (15)
  1. PRIVIGEN [Suspect]
     Active Substance: HUMAN IMMUNOGLOBULIN G
     Indication: Myasthenia gravis
     Dosage: 35 GRAM, DAILY FOR 5 DAYS EVERY 4 WEEKS
     Route: 042
     Dates: start: 20220606
  2. CAPTOPRIL [Concomitant]
     Active Substance: CAPTOPRIL
  3. PRILOSEC [Concomitant]
     Active Substance: OMEPRAZOLE MAGNESIUM
  4. LEVOTHYROXINE [Concomitant]
     Active Substance: LEVOTHYROXINE
  5. METFORMIN [Concomitant]
     Active Substance: METFORMIN HYDROCHLORIDE
  6. ACTOS [Concomitant]
     Active Substance: PIOGLITAZONE HYDROCHLORIDE
  7. ATORVASTATIN [Concomitant]
     Active Substance: ATORVASTATIN
  8. FENOFIBRATE [Concomitant]
     Active Substance: FENOFIBRATE
  9. VICTOZA [Concomitant]
     Active Substance: LIRAGLUTIDE
  10. PREDNISONE [Concomitant]
     Active Substance: PREDNISONE
  11. RESTASIS [Concomitant]
     Active Substance: CYCLOSPORINE
  12. ALLEGRA [Concomitant]
     Active Substance: FEXOFENADINE HYDROCHLORIDE
  13. VITAMIN D NOS [Concomitant]
     Active Substance: VITAMIN D NOS
  14. HYDROXOCOBALAMIN [Concomitant]
     Active Substance: HYDROXOCOBALAMIN
  15. PYRIDOSTIGMINE [Concomitant]
     Active Substance: PYRIDOSTIGMINE

REACTIONS (3)
  - Therapeutic response shortened [Not Recovered/Not Resolved]
  - Stress [Not Recovered/Not Resolved]
  - Vision blurred [Not Recovered/Not Resolved]

NARRATIVE: CASE EVENT DATE: 20220701
